FAERS Safety Report 4509371-9 (Version None)
Quarter: 2004Q4

REPORT INFORMATION
  Report Type: 
  Country: None (occurrence: None)
  Receive Date: 20041025
  Receipt Date: 20040811
  Transmission Date: 20050328
  Serious: Yes (Hospitalization)
  Sender: FDA-Public Use
  Company Number: US-JNJFOC-20040803744

PATIENT
  Age: 59 Year
  Sex: Female
  Weight: 75.2971 kg

DRUGS (1)
  1. REMICADE [Suspect]
     Indication: CROHN'S DISEASE
     Dosage: 1 DOSE(S) INTRAVENOUS
     Route: 042

REACTIONS (1)
  - INFUSION RELATED REACTION [None]
